FAERS Safety Report 16077941 (Version 1)
Quarter: 2019Q1

REPORT INFORMATION
  Report Type: Spontaneous
  Country: DE (occurrence: DE)
  Receive Date: 20190315
  Receipt Date: 20190315
  Transmission Date: 20190418
  Serious: Yes (Other)
  Sender: FDA-Public Use
  Company Number: DE-PFIZER INC-2019108848

PATIENT
  Age: 41 Year
  Sex: Female

DRUGS (4)
  1. DOMINAL (PROTHIPENDYL HYDROCHLORIDE) [Suspect]
     Active Substance: PROTHIPENDYL HYDROCHLORIDE
     Dosage: 40 MG, QD
     Route: 048
     Dates: start: 201810
  2. LYRICA [Concomitant]
     Active Substance: PREGABALIN
     Dosage: UNK
  3. TAVOR (LORAZEPAM) [Suspect]
     Active Substance: LORAZEPAM
     Dosage: 1 MG, QD
     Route: 048
     Dates: start: 201810
  4. OPIPRAMOL 1A PHARMA [Suspect]
     Active Substance: OPIPRAMOL
     Dosage: 50 MG, 3X/DAY
     Route: 048
     Dates: start: 201810

REACTIONS (2)
  - Tinnitus [Unknown]
  - Arrhythmia [Unknown]

NARRATIVE: CASE EVENT DATE: 20190212
